FAERS Safety Report 25756095 (Version 1)
Quarter: 2025Q3

REPORT INFORMATION
  Report Type: Other
  Country: EC (occurrence: EC)
  Receive Date: 20250903
  Receipt Date: 20250903
  Transmission Date: 20251021
  Serious: Yes (Hospitalization, Other)
  Sender: GUARDIAN DRUG COMPANY
  Company Number: EC-Guardian Drug Company-2183733

PATIENT
  Age: 62 Year
  Sex: Female

DRUGS (2)
  1. CHILDRENS IBUPROFEN [Suspect]
     Active Substance: IBUPROFEN
     Indication: Abdominal pain
  2. ACETAMINOPHEN [Suspect]
     Active Substance: ACETAMINOPHEN

REACTIONS (3)
  - Stevens-Johnson syndrome [Recovering/Resolving]
  - Self-medication [Unknown]
  - Toxic epidermal necrolysis [Recovering/Resolving]
